FAERS Safety Report 21176660 (Version 1)
Quarter: 2022Q3

REPORT INFORMATION
  Report Type: Spontaneous
  Country: IT (occurrence: None)
  Receive Date: 20220805
  Receipt Date: 20220805
  Transmission Date: 20221027
  Serious: Yes (Hospitalization)
  Sender: FDA-Public Use
  Company Number: 2022A275201

PATIENT
  Age: 78 Year
  Sex: Female
  Weight: 85 kg

DRUGS (2)
  1. TICAGRELOR [Suspect]
     Active Substance: TICAGRELOR
     Indication: Acute coronary syndrome
     Route: 048
     Dates: start: 20220722, end: 20220722
  2. IOPAMIRO [Suspect]
     Active Substance: IOPAMIDOL
     Indication: Angiocardiogram
     Route: 013
     Dates: start: 20220722, end: 20220722

REACTIONS (2)
  - Bronchospasm [Recovered/Resolved]
  - Oxygen saturation decreased [Recovered/Resolved]

NARRATIVE: CASE EVENT DATE: 20220722
